FAERS Safety Report 23481803 (Version 2)
Quarter: 2024Q1

REPORT INFORMATION
  Report Type: Report from Study
  Country: US (occurrence: US)
  Receive Date: 20240205
  Receipt Date: 20240206
  Transmission Date: 20240410
  Serious: Yes (Hospitalization, Other)
  Sender: FDA-Public Use
  Company Number: US-ORG100014127-2023000499

PATIENT
  Age: 22 Year
  Sex: Female

DRUGS (4)
  1. LYSODREN [Suspect]
     Active Substance: MITOTANE
     Indication: Adrenal gland cancer
     Dosage: 07 TABLETS DAILY IN DIVIDED DOSES AS DIRECTED BY PHYSICIAN
     Route: 048
     Dates: start: 20210902
  2. LYSODREN [Suspect]
     Active Substance: MITOTANE
     Indication: Adrenal gland cancer
     Dosage: 12 TABLETS DAILY
     Route: 048
  3. LYSODREN [Suspect]
     Active Substance: MITOTANE
     Indication: Adrenal gland cancer
     Dosage: 14 TABLETS DAILY
     Route: 048
  4. PROCHLORPER TAB 10MG [Concomitant]
     Indication: Product used for unknown indication

REACTIONS (4)
  - Adrenocortical insufficiency acute [Recovered/Resolved]
  - Nausea [Unknown]
  - Vomiting [Unknown]
  - Fatigue [Unknown]

NARRATIVE: CASE EVENT DATE: 20230101
